FAERS Safety Report 7107887-2 (Version None)
Quarter: 2010Q4

REPORT INFORMATION
  Report Type: 
  Country: None (occurrence: None)
  Receive Date: 20101117
  Receipt Date: 20101109
  Transmission Date: 20110411
  Serious: Yes (Other)
  Sender: FDA-Public Use
  Company Number: BE-BAYER-201045860GPV

PATIENT
  Age: 36 Year
  Sex: Female

DRUGS (1)
  1. MIRENA [Suspect]
     Indication: PRODUCT USED FOR UNKNOWN INDICATION
     Route: 015
     Dates: start: 20100601, end: 20101007

REACTIONS (8)
  - ABDOMINAL DISTENSION [None]
  - ABDOMINAL RIGIDITY [None]
  - GALLBLADDER DISORDER [None]
  - INFLAMMATION [None]
  - LIVER DISORDER [None]
  - MOOD ALTERED [None]
  - TUBO-OVARIAN ABSCESS [None]
  - VAGINAL HAEMORRHAGE [None]
